FAERS Safety Report 9009041 (Version 1)
Quarter: 2013Q1

REPORT INFORMATION
  Report Type: Report from Study
  Country: US (occurrence: US)
  Receive Date: 20130111
  Receipt Date: 20130111
  Transmission Date: 20140127
  Serious: No
  Sender: FDA-Public Use
  Company Number: US-VERTEX PHARMACEUTICALS INC.-2013-000462

PATIENT
  Sex: Male
  Weight: 93 kg

DRUGS (11)
  1. VX-950 (TELAPREVIR) [Suspect]
     Indication: HEPATITIS C
     Dosage: 750 MG, TID
     Route: 048
  2. PEGASYS [Suspect]
     Indication: HEPATITIS C
     Dosage: 180 ?G, UNK
  3. RIBAVIRIN [Suspect]
     Indication: HEPATITIS C
     Dosage: 200 MG, UNK
  4. FUROSEMIDE [Concomitant]
     Dosage: 20 MG, UNK
  5. CIPROFLOXACIN [Concomitant]
     Dosage: 1000 MG, UNK
  6. VITAMIN D 2000 [Concomitant]
     Dosage: 1000 UT, UNK
  7. CALCIUM [Concomitant]
  8. OMEPRAZOLE [Concomitant]
     Dosage: 20.6 MG, UNK
  9. TRIMIPRAMINE [Concomitant]
     Dosage: 50 MG, UNK
  10. OMEGA 3                            /01334101/ [Concomitant]
     Dosage: 1000 MG, UNK
  11. LACTULOSE [Concomitant]
     Dosage: 20 GM/30

REACTIONS (1)
  - Gout [Unknown]
